FAERS Safety Report 6615131-5 (Version None)
Quarter: 2010Q1

REPORT INFORMATION
  Report Type: 
  Country: None (occurrence: None)
  Receive Date: 20100305
  Receipt Date: 20100222
  Transmission Date: 20100710
  Serious: Yes (Hospitalization, Other)
  Sender: FDA-Public Use
  Company Number: FR-BRISTOL-MYERS SQUIBB COMPANY-14998082

PATIENT
  Age: 57 Year
  Sex: Female

DRUGS (4)
  1. GLUCOPHAGE [Suspect]
     Route: 048
     Dates: start: 20010101, end: 20100116
  2. BYETTA [Suspect]
     Dosage: SOLUTION FOR INJECTION
     Route: 058
     Dates: start: 20090401, end: 20100116
  3. EXFORGE [Concomitant]
     Dosage: 1DF-5MG/160MG
     Dates: end: 20100116
  4. TAHOR [Concomitant]
     Dosage: 1DF
     Route: 048

REACTIONS (4)
  - CHOLELITHIASIS [None]
  - GASTROENTERITIS [None]
  - PANCREATITIS ACUTE [None]
  - RENAL FAILURE ACUTE [None]
